FAERS Safety Report 18151156 (Version 3)
Quarter: 2021Q2

REPORT INFORMATION
  Report Type: Spontaneous
  Country: US (occurrence: US)
  Receive Date: 20200814
  Receipt Date: 20210422
  Transmission Date: 20210717
  Serious: No
  Sender: FDA-Public Use
  Company Number: US-PFIZER INC-2020313128

PATIENT
  Age: 78 Year
  Sex: Female

DRUGS (1)
  1. IBRANCE [Suspect]
     Active Substance: PALBOCICLIB
     Indication: BREAST CANCER FEMALE
     Dosage: 125 MG, CYCLIC [125 MG QD (EVERY DAY) X 21 DAYS Q (EVERY) 28 DAYS]
     Dates: start: 20191029

REACTIONS (5)
  - Muscle spasms [Unknown]
  - Rhinorrhoea [Unknown]
  - Fatigue [Unknown]
  - Stomatitis [Unknown]
  - Myalgia [Unknown]
